FAERS Safety Report 25259399 (Version 1)
Quarter: 2025Q2

REPORT INFORMATION
  Report Type: Spontaneous
  Country: US (occurrence: None)
  Receive Date: 20250430
  Receipt Date: 20250430
  Transmission Date: 20250717
  Serious: Yes (unspecified)
  Sender: FDA-CTU
  Company Number: None

PATIENT
  Age: 61 Year
  Sex: Male
  Weight: 82.1 kg

DRUGS (15)
  1. OZEMPIC [Suspect]
     Active Substance: SEMAGLUTIDE
     Indication: Weight decreased
     Dosage: OTHER STRENGTH : 4MG/3ML (1.34 MG/M;?FREQUENCY : WEEKLY;?OTHER ROUTE : INJECTION;?
     Route: 050
     Dates: start: 20230204, end: 20241130
  2. OZEMPIC [Suspect]
     Active Substance: SEMAGLUTIDE
     Indication: Diabetes mellitus
  3. LOSARTAN [Concomitant]
     Active Substance: LOSARTAN
  4. GLIMEPIRIDE [Concomitant]
     Active Substance: GLIMEPIRIDE
  5. OMEPRAZOLE [Concomitant]
     Active Substance: OMEPRAZOLE
  6. METOPROLOL [Concomitant]
     Active Substance: METOPROLOL
  7. BENEFIBER [Concomitant]
     Active Substance: STARCH, WHEAT
  8. PEPPERMINT OIL [Concomitant]
     Active Substance: PEPPERMINT OIL
  9. UNSPECIFIED INGREDIENT [Concomitant]
     Active Substance: UNSPECIFIED INGREDIENT
  10. STOOL SOFTENER (DOCUSATE) [Concomitant]
     Active Substance: DOCUSATE
  11. GAS-X [Concomitant]
     Active Substance: DIMETHICONE
  12. VIT B, C, E [Concomitant]
  13. POTASSIUM [Concomitant]
     Active Substance: POTASSIUM
  14. ZINC [Concomitant]
     Active Substance: ZINC
  15. MAGNESIUM [Concomitant]
     Active Substance: MAGNESIUM

REACTIONS (12)
  - Pain [None]
  - Burning sensation [None]
  - Nausea [None]
  - Constipation [None]
  - Diarrhoea [None]
  - Feeding disorder [None]
  - Fatigue [None]
  - Flatulence [None]
  - Abdominal distension [None]
  - Abdominal pain [None]
  - Gastrointestinal disorder [None]
  - Product complaint [None]

NARRATIVE: CASE EVENT DATE: 20240910
